FAERS Safety Report 8232047-1 (Version None)
Quarter: 2012Q1

REPORT INFORMATION
  Report Type: 
  Country: None (occurrence: None)
  Receive Date: 20120321
  Receipt Date: 20120309
  Transmission Date: 20120608
  Serious: Yes (Hospitalization, Other)
  Sender: FDA-Public Use
  Company Number: AUR-APL-2012-01443

PATIENT
  Age: 52 Year
  Sex: Female

DRUGS (21)
  1. VALACYCLOVIR [Concomitant]
  2. FLU VACCINATION (VACCINE) [Concomitant]
  3. CELECOXIB [Suspect]
     Indication: SOMATOFORM DISORDER
     Dosage: (200 MG)
  4. SIMVASTATIN [Suspect]
     Indication: PRODUCT USED FOR UNKNOWN INDICATION
  5. VENLAFAXINE [Suspect]
     Indication: STRESS AT WORK
     Dosage: (300 MG,1 D)
  6. METOCLOPRAMIDE [Suspect]
     Indication: PRODUCT USED FOR UNKNOWN INDICATION
     Dosage: (AS REQUIRED)
  7. PREMARIN [Suspect]
     Indication: MENOPAUSE
     Dosage: (0.0625 MG)
  8. TENORMIN [Concomitant]
  9. FLUTICASONE PROPIONATE/SALMETEROL [Concomitant]
  10. PENICILLIN (BENZYLPENICILLIN) [Concomitant]
  11. ERYTHROMYCIN [Concomitant]
  12. FLUOXETINE [Suspect]
     Indication: STRESS AT WORK
  13. TRAMADOL HCL [Suspect]
     Indication: SOMATOFORM DISORDER
     Dosage: (AS REQUIRED)
  14. PRAVASTATIN [Suspect]
     Indication: PRODUCT USED FOR UNKNOWN INDICATION
     Dosage: (40 MG)
  15. OROXINE (LEVOTHYROXINE SODIUM) [Concomitant]
  16. PAROXETINE HCL [Suspect]
     Indication: STRESS AT WORK
     Dosage: (60 MG,1 D)
  17. IRBESARTAN [Suspect]
     Indication: HYPERTENSION
     Dosage: (300 MG,1 D)
  18. CEPHALEXIN [Concomitant]
  19. CITALOPRAM HYDROBROMIDE [Suspect]
     Indication: STRESS AT WORK
     Dosage: (60 MG,1 D)
  20. ATORVASTATIN [Suspect]
     Indication: BLOOD CHOLESTEROL INCREASED
  21. DIAZEPAM [Suspect]
     Indication: PRODUCT USED FOR UNKNOWN INDICATION
     Dosage: (5 MG, AS REQUIRED)

REACTIONS (14)
  - RESTLESSNESS [None]
  - DRUG DOSE OMISSION [None]
  - DEPRESSION [None]
  - GILBERT'S SYNDROME [None]
  - HYPERTENSION [None]
  - AGGRESSION [None]
  - PHYSICAL ASSAULT [None]
  - SUICIDAL IDEATION [None]
  - DRUG INTERACTION [None]
  - DELIRIUM [None]
  - AKATHISIA [None]
  - SOMATOFORM DISORDER [None]
  - BLOOD CHOLESTEROL INCREASED [None]
  - VIOLENCE-RELATED SYMPTOM [None]
